FAERS Safety Report 7490632-9 (Version None)
Quarter: 2011Q2

REPORT INFORMATION
  Report Type: 
  Country: None (occurrence: None)
  Receive Date: 20110519
  Receipt Date: 20110415
  Transmission Date: 20111010
  Serious: Yes (Other)
  Sender: FDA-Public Use
  Company Number: US-BAYER-2011-011699

PATIENT
  Age: 22 Year
  Sex: Female
  Weight: 85.714 kg

DRUGS (5)
  1. METFORMIN HCL [Concomitant]
     Dosage: UNK
     Dates: start: 20080723
  2. CIPROFLOXACIN [Concomitant]
     Dosage: UNK
     Route: 048
     Dates: start: 20080501
  3. DOXYCYCLINE [Concomitant]
     Dosage: UNK
     Route: 048
     Dates: start: 20040601, end: 20090801
  4. YASMIN [Suspect]
     Indication: PRODUCT USED FOR UNKNOWN INDICATION
     Dosage: UNK
     Route: 048
     Dates: start: 20010301, end: 20060101
  5. CLOMIPHENE CITRATE [Concomitant]
     Dosage: UNK
     Route: 048
     Dates: start: 20080707

REACTIONS (4)
  - BILIARY DYSKINESIA [None]
  - ABDOMINAL PAIN [None]
  - CHOLECYSTITIS INFECTIVE [None]
  - CHOLELITHIASIS [None]
